FAERS Safety Report 22385865 (Version 3)
Quarter: 2023Q2

REPORT INFORMATION
  Report Type: Spontaneous
  Country: US (occurrence: US)
  Receive Date: 20230530
  Receipt Date: 20230602
  Transmission Date: 20230721
  Serious: Yes (Hospitalization, Other)
  Sender: FDA-Public Use
  Company Number: US-PFIZER INC-PV202300093389

PATIENT
  Age: 77 Year
  Sex: Female

DRUGS (2)
  1. IBRANCE [Suspect]
     Active Substance: PALBOCICLIB
     Dosage: 100 MG
  2. ORSERDU [Suspect]
     Active Substance: ELACESTRANT
     Dosage: UNK

REACTIONS (24)
  - Atrial fibrillation [Unknown]
  - Fall [Unknown]
  - Suicidal ideation [Unknown]
  - Urinary tract infection [Unknown]
  - Spinal fusion surgery [Unknown]
  - Knee arthroplasty [Unknown]
  - Off label use [Unknown]
  - Product use issue [Unknown]
  - Nausea [Unknown]
  - Diarrhoea [Not Recovered/Not Resolved]
  - Amnesia [Unknown]
  - Decreased appetite [Unknown]
  - Fatigue [Unknown]
  - Hypersomnia [Unknown]
  - Urinary tract pain [Recovering/Resolving]
  - Urinary incontinence [Unknown]
  - White blood cell count decreased [Unknown]
  - Contusion [Not Recovered/Not Resolved]
  - Stress [Unknown]
  - Fear [Unknown]
  - Alopecia [Unknown]
  - Neoplasm progression [Unknown]
  - Flatulence [Unknown]
  - Pyrexia [Unknown]

NARRATIVE: CASE EVENT DATE: 20221001
